FAERS Safety Report 9308753 (Version 1)
Quarter: 2013Q2

REPORT INFORMATION
  Report Type: Spontaneous
  Country: US (occurrence: US)
  Receive Date: 20130524
  Receipt Date: 20130524
  Transmission Date: 20140414
  Serious: No
  Sender: FDA-Public Use
  Company Number: US-NOVEN-13US006707

PATIENT
  Sex: Female

DRUGS (4)
  1. MINIVELLE [Suspect]
     Indication: NIGHT SWEATS
     Dosage: 0.05 MG, UNKNOWN
     Route: 062
     Dates: start: 2013, end: 2013
  2. MINIVELLE [Suspect]
     Indication: HOT FLUSH
  3. ESTROGEN [Concomitant]
     Indication: HORMONE REPLACEMENT THERAPY
     Route: 067
  4. PROMETRIUM                         /00110701/ [Concomitant]
     Indication: HORMONE REPLACEMENT THERAPY
     Dosage: EVENING
     Route: 048

REACTIONS (3)
  - Night sweats [Recovered/Resolved]
  - Drug ineffective [Recovered/Resolved]
  - Product quality issue [Recovered/Resolved]
